FAERS Safety Report 25431476 (Version 1)
Quarter: 2025Q2

REPORT INFORMATION
  Report Type: Spontaneous
  Country: FR (occurrence: FR)
  Receive Date: 20250613
  Receipt Date: 20250613
  Transmission Date: 20250717
  Serious: Yes (Death)
  Sender: CHEPLAPHARM
  Company Number: None

PATIENT
  Age: 31 Year
  Sex: Male

DRUGS (4)
  1. CLONAZEPAM [Suspect]
     Active Substance: CLONAZEPAM
  2. COCAINE [Suspect]
     Active Substance: COCAINE
  3. NORDAZEPAM [Concomitant]
     Active Substance: NORDAZEPAM
  4. CODEINE [Concomitant]
     Active Substance: CODEINE

REACTIONS (3)
  - Drug use disorder [Fatal]
  - Cardio-respiratory arrest [Fatal]
  - Haematemesis [Fatal]

NARRATIVE: CASE EVENT DATE: 20241128
